FAERS Safety Report 21793850 (Version 1)
Quarter: 2022Q4

REPORT INFORMATION
  Report Type: Other
  Country: ES (occurrence: None)
  Receive Date: 20221229
  Receipt Date: 20221229
  Transmission Date: 20230113
  Serious: Yes (Other)
  Sender: FDA-Public Use
  Company Number: ES-ROCHE-3252562

PATIENT

DRUGS (1)
  1. TOCILIZUMAB [Suspect]
     Active Substance: TOCILIZUMAB
     Indication: Uveitis
     Route: 065

REACTIONS (3)
  - Sepsis [Unknown]
  - Cellulitis [Unknown]
  - Off label use [Unknown]
